FAERS Safety Report 10222800 (Version 2)
Quarter: 2014Q2

REPORT INFORMATION
  Report Type: Report from Study
  Country: TR (occurrence: TR)
  Receive Date: 20140606
  Receipt Date: 20140606
  Transmission Date: 20141212
  Serious: Yes (Hospitalization, Disabling)
  Sender: FDA-Public Use
  Company Number: TR-CELGENEUS-161-21880-14032580

PATIENT
  Age: 35 Year
  Sex: Male
  Weight: 78 kg

DRUGS (6)
  1. REVLIMID [Suspect]
     Indication: PLASMA CELL MYELOMA
     Route: 048
     Dates: start: 20140303, end: 20140318
  2. LANSOPRAZOL [Concomitant]
     Indication: PROPHYLAXIS
     Route: 065
     Dates: start: 20140303
  3. BORTEZOMIB [Concomitant]
     Indication: PLASMA CELL MYELOMA
     Route: 065
     Dates: start: 20131106, end: 20140226
  4. CYCLOPHOSPHAMIDE [Concomitant]
     Indication: PLASMA CELL MYELOMA
     Route: 065
     Dates: start: 20131106, end: 20140226
  5. DEXAMETHASONE [Concomitant]
     Indication: PLASMA CELL MYELOMA
     Route: 065
     Dates: start: 20131106, end: 20140226
  6. DEXAMETHASONE [Concomitant]
     Route: 065
     Dates: start: 20120701

REACTIONS (2)
  - Lumbar vertebral fracture [Not Recovered/Not Resolved]
  - Plasma cell myeloma recurrent [Recovered/Resolved with Sequelae]
